FAERS Safety Report 22162424 (Version 4)
Quarter: 2023Q2

REPORT INFORMATION
  Report Type: Spontaneous
  Country: US (occurrence: US)
  Receive Date: 20230331
  Receipt Date: 20230630
  Transmission Date: 20230722
  Serious: Yes (Other)
  Sender: FDA-Public Use
  Company Number: US-VERTEX PHARMACEUTICALS-2023-004490

PATIENT

DRUGS (1)
  1. TRIKAFTA [Suspect]
     Active Substance: ELEXACAFTOR\IVACAFTOR\TEZACAFTOR
     Indication: Cystic fibrosis
     Dosage: FREQ UNK
     Route: 048

REACTIONS (15)
  - Pulmonary fibrosis [Unknown]
  - Sensation of foreign body [Unknown]
  - Dysphagia [Unknown]
  - Iron deficiency anaemia [Unknown]
  - Insomnia [Unknown]
  - Panic attack [Recovered/Resolved]
  - Infection [Unknown]
  - Dyspnoea exertional [Unknown]
  - Fatigue [Unknown]
  - Anxiety [Recovering/Resolving]
  - Joint swelling [Recovering/Resolving]
  - Infective pulmonary exacerbation of cystic fibrosis [Not Recovered/Not Resolved]
  - Bronchial secretion retention [Not Recovered/Not Resolved]
  - Nasopharyngitis [Unknown]
  - Influenza [Unknown]
